FAERS Safety Report 17175359 (Version 1)
Quarter: 2019Q4

REPORT INFORMATION
  Report Type: Spontaneous
  Country: US (occurrence: US)
  Receive Date: 20191219
  Receipt Date: 20191219
  Transmission Date: 20200122
  Serious: No
  Sender: FDA-Public Use
  Company Number: US-UCBSA-116582

PATIENT
  Sex: Male

DRUGS (6)
  1. CIMZIA [Suspect]
     Active Substance: CERTOLIZUMAB PEGOL
     Dosage: UNKNOWN DOSE
  2. FENTANYL TRANSDERMAL SYSTEM [Concomitant]
     Active Substance: FENTANYL
     Indication: CROHN^S DISEASE
  3. HUMIRA [Concomitant]
     Active Substance: ADALIMUMAB
     Dosage: 6 INJECTIONS (240MG)
     Dates: start: 20140212
  4. HUMIRA [Concomitant]
     Active Substance: ADALIMUMAB
     Indication: CROHN^S DISEASE
     Dosage: 40 MG, EV 2 WEEKS(QOW)
     Dates: start: 200912, end: 201212
  5. KLONOPIN [Concomitant]
     Active Substance: CLONAZEPAM
     Indication: SOMNOLENCE
  6. VICODIN [Concomitant]
     Active Substance: ACETAMINOPHEN\HYDROCODONE BITARTRATE
     Indication: CROHN^S DISEASE

REACTIONS (2)
  - Crohn^s disease [Unknown]
  - Drug ineffective [Unknown]
